FAERS Safety Report 10257719 (Version 1)
Quarter: 2014Q2

REPORT INFORMATION
  Report Type: Spontaneous
  Country: US (occurrence: None)
  Receive Date: 20140623
  Receipt Date: 20140623
  Transmission Date: 20141212
  Serious: No
  Sender: FDA-Public Use
  Company Number: None

PATIENT
  Age: 42 Year
  Sex: Male
  Weight: 79.38 kg

DRUGS (1)
  1. SULFAMETHOXAZOLE [Suspect]
     Indication: PROSTATE INFECTION
     Route: 048
     Dates: start: 20140609, end: 20140617

REACTIONS (1)
  - Rash generalised [None]
